FAERS Safety Report 5598830-6 (Version None)
Quarter: 2008Q1

REPORT INFORMATION
  Report Type: 
  Country: None (occurrence: None)
  Receive Date: 20080122
  Receipt Date: 20080114
  Transmission Date: 20080703
  Serious: Yes (Disabling, Other)
  Sender: FDA-Public Use
  Company Number: US-ELI_LILLY_AND_COMPANY-US200709002494

PATIENT
  Sex: Female

DRUGS (37)
  1. FORTEO [Suspect]
     Indication: OSTEOPOROSIS
     Dosage: 20 UG, DAILY (1/D)
     Dates: start: 20070401
  2. FORTEO [Suspect]
     Dosage: 20 UG, DAILY (1/D)
  3. VIOXX [Concomitant]
     Indication: ARTHRITIS
  4. CELEBREX [Concomitant]
     Indication: ARTHRITIS
  5. ALEVE [Concomitant]
     Indication: ARTHRITIS
     Dosage: UNK, 4/D
     Dates: end: 20070101
  6. ALEVE [Concomitant]
     Dosage: 2 UNK, 2/D
     Dates: start: 20070101
  7. ALPRAZOLAM [Concomitant]
     Dosage: 0.5 MG,
  8. BUMETANIDE [Concomitant]
     Dosage: 2 MG, 2/D
  9. CYCLOBENZAPRINE HCL [Concomitant]
     Dosage: 10 MG, DAILY (1/D)
  10. DIOVAN [Concomitant]
     Dosage: 160 MG, UNK
  11. VICODIN [Concomitant]
     Dosage: 2 UNK, 3/D
  12. MELOXICAM [Concomitant]
     Dosage: 15 MG, UNK
  13. KLOR-CON [Concomitant]
  14. COSAMIN DS /01484401/ [Concomitant]
  15. LEXAPRO [Concomitant]
     Dosage: 20 MG, UNK
  16. MIRAPEX [Concomitant]
     Dosage: 0.5 MG, UNK
  17. PREVACID [Concomitant]
     Dosage: 30 MG, UNK
  18. CALCIUM WITH VITAMIN D /00944201/ [Concomitant]
     Dosage: 500 MG, UNK
  19. SYNTHROID [Concomitant]
     Dosage: 125 UG, UNK
  20. ASPIRIN [Concomitant]
  21. VITAMIN B-12 [Concomitant]
  22. ASCORBIC ACID [Concomitant]
  23. CENTRUM [Concomitant]
  24. COENZYME Q10 [Concomitant]
  25. IRON [Concomitant]
     Indication: MINERAL SUPPLEMENTATION
  26. GAS X [Concomitant]
  27. LUTEIN [Concomitant]
  28. MUCINEX [Concomitant]
  29. SENOKOT [Concomitant]
  30. BENEFIBER [Concomitant]
  31. METAMUCIL [Concomitant]
  32. COMBIVENT [Concomitant]
  33. SODIUM CHLORIDE 0.9% [Concomitant]
     Route: 045
  34. FLONASE [Concomitant]
  35. NASACORT [Concomitant]
  36. NYSTATIN [Concomitant]
  37. AZITHROMYCIN [Concomitant]

REACTIONS (10)
  - ARTHRALGIA [None]
  - CERVICAL SPINAL STENOSIS [None]
  - FALL [None]
  - FEELING ABNORMAL [None]
  - HAND DEFORMITY [None]
  - MALAISE [None]
  - SLEEP APNOEA SYNDROME [None]
  - SOMNOLENCE [None]
  - SPINAL CLAUDICATION [None]
  - STRESS FRACTURE [None]
